FAERS Safety Report 9223130 (Version 1)
Quarter: 2013Q2

REPORT INFORMATION
  Report Type: Spontaneous
  Country: US (occurrence: None)
  Receive Date: 20130409
  Receipt Date: 20130409
  Transmission Date: 20140414
  Serious: Yes (Other)
  Sender: FDA-Public Use
  Company Number: None

PATIENT
  Age: 34 Year
  Sex: Male
  Weight: 120.2 kg

DRUGS (2)
  1. TRAMADOL [Suspect]
     Indication: BACK PAIN
     Route: 048
  2. NICOTINE [Suspect]
     Route: 062

REACTIONS (2)
  - Headache [None]
  - Oral pain [None]
